FAERS Safety Report 9735863 (Version 2)
Quarter: 2015Q3

REPORT INFORMATION
  Report Type: Spontaneous
  Country: US (occurrence: US)
  Receive Date: 20131206
  Receipt Date: 20150804
  Transmission Date: 20151125
  Serious: No
  Sender: FDA-Public Use
  Company Number: US-GILEAD-2009-0024271

PATIENT
  Age: 82 Year
  Sex: Female
  Weight: 88.45 kg

DRUGS (17)
  1. MIDODRINE [Concomitant]
     Active Substance: MIDODRINE
  2. SYSTANE DROPS [Concomitant]
  3. NITRO-DUR PATCH [Concomitant]
  4. ADVAIR HFA [Concomitant]
     Active Substance: FLUTICASONE PROPIONATE\SALMETEROL XINAFOATE
  5. FERROUS SULFATE [Concomitant]
     Active Substance: FERROUS SULFATE\FERROUS SULFATE, DRIED
  6. CYMBALTA [Concomitant]
     Active Substance: DULOXETINE HYDROCHLORIDE
  7. POTASSIUM CHLORIDE. [Concomitant]
     Active Substance: POTASSIUM CHLORIDE
  8. PRILOSEC [Concomitant]
     Active Substance: OMEPRAZOLE MAGNESIUM
  9. GLUCOSAMINE [Concomitant]
     Active Substance: GLUCOSAMINE
  10. BUMEX [Concomitant]
     Active Substance: BUMETANIDE
  11. LETAIRIS [Suspect]
     Active Substance: AMBRISENTAN
     Indication: PULMONARY ARTERIAL HYPERTENSION
     Route: 048
     Dates: start: 20090520
  12. LEVOXYL [Concomitant]
     Active Substance: LEVOTHYROXINE SODIUM
  13. LOVASTATIN. [Concomitant]
     Active Substance: LOVASTATIN
  14. ERGOCALCIFEROL/NICOTINAMIDE/RETINOL/ASCORBIC ACID/FOLIC ACID/PANTHENOL/RIBOFLAVIN/THIAMINE HYDROCHLO [Concomitant]
  15. ALTACE [Concomitant]
     Active Substance: RAMIPRIL
  16. STARLIX [Concomitant]
     Active Substance: NATEGLINIDE
  17. LANTUS [Concomitant]
     Active Substance: INSULIN GLARGINE

REACTIONS (1)
  - Weight increased [Unknown]
